FAERS Safety Report 7607784-X (Version None)
Quarter: 2011Q3

REPORT INFORMATION
  Report Type: 
  Country: None (occurrence: None)
  Receive Date: 20110713
  Receipt Date: 20110622
  Transmission Date: 20111222
  Serious: Yes (Other)
  Sender: FDA-Public Use
  Company Number: PHHY2011JP50778

PATIENT
  Age: 58 Year
  Sex: Female

DRUGS (1)
  1. FAMVIR [Suspect]
     Dosage: 1500 MG, QD
     Route: 048
     Dates: start: 20110509, end: 20110510

REACTIONS (3)
  - DIZZINESS [None]
  - CHOKING SENSATION [None]
  - CHEST DISCOMFORT [None]
